FAERS Safety Report 25282381 (Version 1)
Quarter: 2025Q2

REPORT INFORMATION
  Report Type: Spontaneous
  Country: US (occurrence: None)
  Receive Date: 20250507
  Receipt Date: 20250507
  Transmission Date: 20250717
  Serious: Yes (Hospitalization)
  Sender: FDA-CTU
  Company Number: None

PATIENT
  Age: 78 Year
  Sex: Male

DRUGS (1)
  1. ABIRATERONE ACETATE [Suspect]
     Active Substance: ABIRATERONE ACETATE
     Indication: Prostate cancer
     Dosage: FREQUENCY : DAILY;?

REACTIONS (6)
  - Hepatotoxicity [None]
  - Pollakiuria [None]
  - Blood urine present [None]
  - Fatigue [None]
  - Peripheral swelling [None]
  - May-Thurner syndrome [None]
